FAERS Safety Report 9561702 (Version 1)
Quarter: 2013Q3

REPORT INFORMATION
  Report Type: Spontaneous
  Country: CA (occurrence: None)
  Receive Date: 20130925
  Receipt Date: 20130925
  Transmission Date: 20140515
  Serious: Yes (Other)
  Sender: FDA-Public Use
  Company Number: DSU-2013-04568

PATIENT
  Age: 75 Year
  Sex: Female
  Weight: 62.6 kg

DRUGS (3)
  1. OLMETEC [Suspect]
     Indication: PRODUCT USED FOR UNKNOWN INDICATION
     Dosage: 20 MG (20 MG, QD), UNKNOWN
  2. ASA (ACETYLSALICYLIC ACID) (ACETYLSALICYLIC ACID) [Concomitant]
  3. DILANTIN (PHENYTOIN SODIUM) (PHENYTOIN SODIUM) [Concomitant]

REACTIONS (3)
  - Condition aggravated [None]
  - Convulsion [None]
  - Headache [None]
